FAERS Safety Report 14022177 (Version 3)
Quarter: 2017Q4

REPORT INFORMATION
  Report Type: Report from Study
  Country: ES (occurrence: ES)
  Receive Date: 20170928
  Receipt Date: 20171213
  Transmission Date: 20180321
  Serious: Yes (Hospitalization)
  Sender: FDA-Public Use
  Company Number: ES-B.I. PHARMACEUTICALS,INC./RIDGEFIELD-2017-BI-051825

PATIENT
  Age: 67 Year
  Sex: Male
  Weight: 66 kg

DRUGS (11)
  1. AFATINIB [Suspect]
     Active Substance: AFATINIB
     Indication: TRANSITIONAL CELL CARCINOMA
     Route: 048
     Dates: start: 20170721
  2. ARAVA [Concomitant]
     Active Substance: LEFLUNOMIDE
     Indication: RHEUMATOID ARTHRITIS
     Route: 048
     Dates: start: 201703
  3. OXYNORM [Concomitant]
     Active Substance: OXYCODONE HYDROCHLORIDE
     Indication: BACK PAIN
     Route: 048
     Dates: start: 20170710
  4. ZAMENE [Concomitant]
     Active Substance: DEFLAZACORT
     Indication: RHEUMATOID ARTHRITIS
     Route: 048
     Dates: start: 20090507
  5. DIAZEPAM. [Concomitant]
     Active Substance: DIAZEPAM
     Indication: PROPHYLAXIS
  6. DIAZEPAM. [Concomitant]
     Active Substance: DIAZEPAM
     Indication: ANXIETY
     Route: 048
     Dates: start: 20170711
  7. ONDANSETRON [Concomitant]
     Active Substance: ONDANSETRON
     Indication: VOMITING
  8. TARGIN [Concomitant]
     Active Substance: NALOXONE HYDROCHLORIDE\OXYCODONE HYDROCHLORIDE
     Indication: BACK PAIN
     Route: 048
     Dates: start: 20170710
  9. TARGIN [Concomitant]
     Active Substance: NALOXONE HYDROCHLORIDE\OXYCODONE HYDROCHLORIDE
     Route: 048
     Dates: start: 20170721
  10. ONDANSETRON [Concomitant]
     Active Substance: ONDANSETRON
     Indication: NAUSEA
     Route: 048
     Dates: start: 20170818
  11. FLUTICASONE FUROATE W/VILANTEROL [Concomitant]
     Active Substance: FLUTICASONE FUROATE\VILANTEROL TRIFENATATE
     Indication: CHRONIC OBSTRUCTIVE PULMONARY DISEASE
     Dosage: TOTAL DAILY DOSE: 1 PUFF
     Route: 055
     Dates: start: 20150807

REACTIONS (5)
  - Nausea [Recovered/Resolved]
  - Diarrhoea [Recovered/Resolved]
  - Renal failure [Recovered/Resolved]
  - Hypokalaemia [Recovered/Resolved]
  - Vomiting [Recovered/Resolved]

NARRATIVE: CASE EVENT DATE: 20170919
